FAERS Safety Report 7218593-8 (Version None)
Quarter: 2011Q1

REPORT INFORMATION
  Report Type: 
  Country: None (occurrence: None)
  Receive Date: 20110110
  Receipt Date: 20101227
  Transmission Date: 20110831
  Serious: Yes (Hospitalization)
  Sender: FDA-Public Use
  Company Number: US-GILEAD-2010-0032790

PATIENT
  Age: 78 Year
  Sex: Female
  Weight: 70.37 kg

DRUGS (10)
  1. SYNTHROID [Concomitant]
  2. LOTREL [Concomitant]
  3. SIMVASTATIN [Concomitant]
  4. ASPIRIN [Concomitant]
  5. CELEBREX [Concomitant]
  6. LETAIRIS [Suspect]
     Indication: PULMONARY ARTERIAL HYPERTENSION
     Route: 048
     Dates: start: 20100921, end: 20101220
  7. FUROSEMIDE [Concomitant]
  8. METFORMIN [Concomitant]
  9. AMITRIPTYLINE [Concomitant]
  10. LYRICA [Concomitant]

REACTIONS (4)
  - ADVERSE DRUG REACTION [None]
  - CONSTIPATION [None]
  - MALAISE [None]
  - BACK PAIN [None]
